FAERS Safety Report 9230757 (Version 1)
Quarter: 2013Q1

REPORT INFORMATION
  Report Type: Spontaneous
  Country: US (occurrence: None)
  Receive Date: 20121031
  Receipt Date: 20121031
  Transmission Date: 20140127
  Serious: No
  Sender: FDA-Public Use
  Company Number: PHEH2012US013534

PATIENT
  Age: 60 Year
  Sex: Female

DRUGS (3)
  1. GILENYA [Suspect]
     Indication: MULTIPLE SCLEROSIS
     Route: 048
     Dates: start: 20120629
  2. KEPRA (LEVETIRACETAM) [Concomitant]
  3. PROZAC (FLUOXETINE HYDROCHLORIDE) [Concomitant]

REACTIONS (4)
  - Feeling abnormal [None]
  - Nausea [None]
  - Diplopia [None]
  - Diarrhoea [None]
